FAERS Safety Report 13496326 (Version 1)
Quarter: 2017Q2

REPORT INFORMATION
  Report Type: Spontaneous
  Country: US (occurrence: US)
  Receive Date: 20170428
  Receipt Date: 20170428
  Transmission Date: 20170830
  Serious: Yes (Other)
  Sender: FDA-Public Use
  Company Number: US-PFIZER INC-2017042210

PATIENT
  Age: 72 Year
  Sex: Female

DRUGS (22)
  1. ECOTRIN [Concomitant]
     Active Substance: ASPIRIN
     Dosage: 81 MG, UNK (EVERY MONDAY, WEDNESDAY, FRIDAY)
     Route: 048
  2. POTASSIUM [Concomitant]
     Active Substance: POTASSIUM
     Dosage: 99 MG, 1X/DAY
     Route: 048
  3. ATARAX [Concomitant]
     Active Substance: HYDROXYZINE HYDROCHLORIDE
     Indication: PRURITUS
     Dosage: 25 MG, AS NEEDED (THREE TIMES DAILY AS NEEDED )
     Route: 048
  4. CALCIUM CARBONATE/COLECALCIFEROL/MAGNESIUM OXIDE [Concomitant]
     Dosage: 1 DF, 2X/DAY [CALCIUM CARBONATE: 400 MG] [MAGNESIUM OXIDE: 167] [COLECALCIFEROL: 133 MG]
     Route: 048
  5. KRILL OIL [Concomitant]
     Active Substance: DIETARY SUPPLEMENT
     Dosage: 350 MG, UNK
     Route: 048
  6. SOMATROPIN [Concomitant]
     Active Substance: SOMATROPIN
     Dosage: 0.25 UG, DAILY
     Route: 058
  7. GENOTROPIN MQ [Suspect]
     Active Substance: SOMATROPIN
     Dosage: 0.4 MG, DAILY
     Dates: start: 201108
  8. PULMICORT TURBUHALER [Concomitant]
     Active Substance: BUDESONIDE
     Dosage: 90 UG, UNK
  9. GENOTROPIN MQ [Suspect]
     Active Substance: SOMATROPIN
     Indication: GROWTH HORMONE DEFICIENCY
     Dosage: 0.2 MG, DAILY
     Dates: start: 2008
  10. CITRACAL +  D3,  CALCIUM PHOS [Concomitant]
     Dosage: 250 MG, MOUTH 3 TIMES WEEKLY
     Route: 048
  11. VICTOZA [Concomitant]
     Active Substance: LIRAGLUTIDE
     Dosage: 1.2 MG, DAILY (INJECT 1.2 MG INTO THE SKIN DAILY)
     Route: 062
  12. SINGULAIR [Concomitant]
     Active Substance: MONTELUKAST SODIUM
     Dosage: 10 MG, DAILY
     Route: 048
  13. CARDIZEM CD [Concomitant]
     Active Substance: DILTIAZEM HYDROCHLORIDE
     Dosage: 240 MG, DAILY
     Route: 048
  14. PEPCID [Concomitant]
     Active Substance: FAMOTIDINE
     Dosage: 20 MG, 2X/DAY
     Route: 048
  15. ALLEGRA [Concomitant]
     Active Substance: FEXOFENADINE HYDROCHLORIDE
     Dosage: 180 MG, DAILY
     Route: 048
  16. ZOCOR [Concomitant]
     Active Substance: SIMVASTATIN
     Dosage: 20 MG, 1X/DAY (TAKE 20 MG BY MOUTH EVERY EVENING)
     Route: 048
  17. COENZYME Q10 [Concomitant]
     Active Substance: UBIDECARENONE
     Dosage: 60 MG, UNK
     Route: 048
  18. FISH OIL OMEGA 3 [Concomitant]
     Active Substance: FISH OIL
     Dosage: 500 MG, DAILY (T500-100 MG CAP; AKE 500 MG BY MOUTH DAILY)
     Route: 048
  19. VITAMIN D3 [Concomitant]
     Active Substance: CHOLECALCIFEROL
     Dosage: 1000 IU, DAILY
     Route: 048
  20. BOSWELLIA SERRATA W/COLECALCIFEROL/GLUCOSAMIN [Concomitant]
     Dosage: 1 DF, 2X/DAY[GLUCOSAMINE: 1500 MG][COLECALCIFEROL: 400 UNIT][BOSWELLIA SERRATA: 100MG]
  21. HYZAAR [Concomitant]
     Active Substance: HYDROCHLOROTHIAZIDE\LOSARTAN POTASSIUM
     Dosage: 1 DF, DAILY[LOSARTAN: 100 MG] [HYDROCHLOROTHIAZIDE: 25 MG]
     Route: 048
  22. GLUCOPHAGE XR [Concomitant]
     Active Substance: METFORMIN HYDROCHLORIDE
     Dosage: 500 MG, 2X/DAY
     Route: 048

REACTIONS (13)
  - Arthralgia [Unknown]
  - Asthenia [Unknown]
  - Contusion [Unknown]
  - Weight increased [Unknown]
  - Temperature intolerance [Unknown]
  - Swelling [Unknown]
  - Urinary incontinence [Unknown]
  - Musculoskeletal stiffness [Unknown]
  - Hyperhidrosis [Unknown]
  - Dry skin [Unknown]
  - Diabetes mellitus inadequate control [Unknown]
  - Dyspepsia [Unknown]
  - Alopecia [Unknown]

NARRATIVE: CASE EVENT DATE: 20161125
